FAERS Safety Report 15496615 (Version 1)
Quarter: 2018Q4

REPORT INFORMATION
  Report Type: Spontaneous
  Country: NL (occurrence: NL)
  Receive Date: 20181013
  Receipt Date: 20181013
  Transmission Date: 20190205
  Serious: Yes (Other)
  Sender: FDA-Public Use
  Company Number: NL-TEVA-2018-NL-963945

PATIENT
  Age: 64 Year
  Sex: Male

DRUGS (8)
  1. PARACETAMOL 1000 MG [Concomitant]
     Dosage: 2DD1
  2. CALCIUMCARBONAAT 500 MG [Concomitant]
     Dosage: 500 MILLIGRAM DAILY; 1DD1
  3. MOMETASON NEUSSPRAY [Concomitant]
     Active Substance: MOMETASONE FUROATE
     Dosage: 2DD2
  4. METHOTREXAAT INJECTIEVLOEISTOF, 25 MG/ML (MILLIGRAM PER MILLILITER) [Suspect]
     Active Substance: METHOTREXATE
     Indication: RHEUMATIC DISORDER
     Dosage: 1X PER WEEK 1 MILILITER (=25 MG)
     Dates: start: 20130307, end: 20171030
  5. DCURA 25000 IE [Concomitant]
     Dosage: 1X AMPOULES ONCE A MONTH (=50.000IE)
  6. COMBODART 0,5/0,4 MG [Concomitant]
     Dosage: 1 DOSAGE FORMS DAILY; 1DD1
  7. SILDENAFIL 100 MG [Concomitant]
     Active Substance: SILDENAFIL
     Dosage: IF NECESSARY 1
  8. OMEPRAZOL 20 MG [Concomitant]
     Active Substance: OMEPRAZOLE
     Dosage: 20 MILLIGRAM DAILY; 1DD1

REACTIONS (3)
  - Dyspnoea [Recovered/Resolved with Sequelae]
  - Increased bronchial secretion [Recovered/Resolved with Sequelae]
  - Pulmonary toxicity [Recovered/Resolved with Sequelae]

NARRATIVE: CASE EVENT DATE: 20170202
